FAERS Safety Report 8297971-2 (Version None)
Quarter: 2012Q2

REPORT INFORMATION
  Report Type: 
  Country: None (occurrence: None)
  Receive Date: 20120419
  Receipt Date: 20120120
  Transmission Date: 20120825
  Serious: Yes (Hospitalization)
  Sender: FDA-Public Use
  Company Number: US-BAYER-200943140NA

PATIENT
  Age: 39 Year
  Sex: Female
  Weight: 121.9 kg

DRUGS (8)
  1. MOBIC [Concomitant]
  2. GLIPIZIDE [Concomitant]
  3. METFORMIN HCL [Concomitant]
  4. CLONIDINE [Concomitant]
  5. DIOVAN HCT [Concomitant]
  6. YAZ [Suspect]
     Dosage: UNK
     Route: 048
  7. LABETALOL HCL [Concomitant]
     Indication: BLOOD PRESSURE INCREASED
  8. HYDROCHLOROTHIAZIDE [Concomitant]
     Indication: BLOOD PRESSURE INCREASED

REACTIONS (7)
  - DEEP VEIN THROMBOSIS [None]
  - SWELLING [None]
  - PAIN [None]
  - SKIN DISCOLOURATION [None]
  - PULMONARY EMBOLISM [None]
  - DIZZINESS [None]
  - DRY SKIN [None]
